FAERS Safety Report 23055717 (Version 1)
Quarter: 2023Q4

REPORT INFORMATION
  Report Type: Report from Study
  Country: CN (occurrence: CN)
  Receive Date: 20231011
  Receipt Date: 20231011
  Transmission Date: 20240110
  Serious: Yes (Death, Other)
  Sender: FDA-Public Use
  Company Number: CN-SUN PHARMACEUTICAL INDUSTRIES LTD-2023R1-411975

PATIENT
  Age: 86 Year

DRUGS (3)
  1. OXALIPLATIN [Suspect]
     Active Substance: OXALIPLATIN
     Indication: Chemotherapy
     Dosage: 100 MILLIGRAM
     Route: 065
  2. ADRIAMYCIN [Suspect]
     Active Substance: DOXORUBICIN HYDROCHLORIDE
     Indication: Chemotherapy
     Dosage: 30-50 MG
     Route: 065
  3. RALTITREXED [Suspect]
     Active Substance: RALTITREXED
     Indication: Chemotherapy
     Dosage: 4 MILLIGRAM
     Route: 065

REACTIONS (1)
  - Myocardial infarction [Fatal]
